FAERS Safety Report 9209181 (Version 1)
Quarter: 2013Q2

REPORT INFORMATION
  Report Type: Spontaneous
  Country: US (occurrence: None)
  Receive Date: 20130403
  Receipt Date: 20130403
  Transmission Date: 20140414
  Serious: Yes (Other)
  Sender: FDA-Public Use
  Company Number: None

PATIENT
  Age: 61 Year
  Sex: Male
  Weight: 79.02 kg

DRUGS (1)
  1. NORDITROPIN FLEXPRO [Suspect]
     Dosage: 0.1 MG QD SC
     Route: 058

REACTIONS (1)
  - Therapy cessation [None]
